FAERS Safety Report 7229907-7 (Version None)
Quarter: 2011Q1

REPORT INFORMATION
  Report Type: 
  Country: None (occurrence: None)
  Receive Date: 20110117
  Receipt Date: 20110107
  Transmission Date: 20110831
  Serious: Yes (Death, Congenital Anomaly, Other)
  Sender: FDA-Public Use
  Company Number: FR-ABBOTT-10P-056-0670266-00

PATIENT

DRUGS (7)
  1. LYSINE ACETYLSALICYLIC [Suspect]
     Indication: DRUG EXPOSURE DURING PREGNANCY
     Route: 064
  2. TRUVADA [Suspect]
     Indication: DRUG EXPOSURE DURING PREGNANCY
     Route: 064
  3. ASPEGIC 1000 [Suspect]
     Indication: DRUG EXPOSURE DURING PREGNANCY
     Route: 064
  4. LYRICA [Suspect]
     Indication: DRUG EXPOSURE DURING PREGNANCY
     Route: 064
  5. KALETRA [Suspect]
     Indication: DRUG EXPOSURE DURING PREGNANCY
     Route: 064
  6. COMBIVIR [Suspect]
     Indication: DRUG EXPOSURE DURING PREGNANCY
     Route: 064
  7. GUTRON [Suspect]
     Indication: DRUG EXPOSURE DURING PREGNANCY
     Route: 064

REACTIONS (4)
  - CEREBELLAR HYPOPLASIA [None]
  - HYDROCEPHALUS [None]
  - DRUG EXPOSURE DURING PREGNANCY [None]
  - GASTROINTESTINAL DISORDER [None]
